FAERS Safety Report 15278467 (Version 1)
Quarter: 2018Q3

REPORT INFORMATION
  Report Type: Spontaneous
  Country: GB (occurrence: GB)
  Receive Date: 20180814
  Receipt Date: 20180814
  Transmission Date: 20181010
  Serious: Yes (Other)
  Sender: FDA-Public Use
  Company Number: GB-TEVA-2018-GB-900779

PATIENT
  Age: 75 Year
  Sex: Female

DRUGS (4)
  1. ZERLINDA [Suspect]
     Active Substance: ZOLEDRONIC ACID
     Indication: OSTEOPOROSIS
     Dosage: 4MG/100ML
     Route: 042
     Dates: start: 20180418
  2. CALCIUM [Concomitant]
     Active Substance: CALCIUM
  3. PRANTOPROZOLE [Concomitant]
     Dosage: 20 GBQ DAILY;
  4. VITAMIN D [Concomitant]
     Active Substance: CHOLECALCIFEROL

REACTIONS (35)
  - Dehydration [Unknown]
  - Back pain [Unknown]
  - Neck pain [Unknown]
  - Fatigue [Unknown]
  - Blindness unilateral [Unknown]
  - Malaise [Unknown]
  - Headache [Not Recovered/Not Resolved]
  - Muscle twitching [Unknown]
  - Ocular hyperaemia [Unknown]
  - Hypoaesthesia [Not Recovered/Not Resolved]
  - Nausea [Not Recovered/Not Resolved]
  - Influenza like illness [Unknown]
  - Deafness unilateral [Unknown]
  - Infusion site scar [Unknown]
  - Dizziness [Not Recovered/Not Resolved]
  - Blood urine present [Unknown]
  - Amnesia [Unknown]
  - Tinnitus [Unknown]
  - Malaise [Not Recovered/Not Resolved]
  - Hypertension [Unknown]
  - Eye pain [Unknown]
  - Chills [Not Recovered/Not Resolved]
  - Disturbance in attention [Unknown]
  - Decreased appetite [Unknown]
  - Constipation [Unknown]
  - Infusion site warmth [Not Recovered/Not Resolved]
  - Loss of personal independence in daily activities [Unknown]
  - Muscle spasms [Unknown]
  - Hypoaesthesia [Unknown]
  - Dysgeusia [Unknown]
  - Infusion site rash [Unknown]
  - Rash macular [Unknown]
  - Groin pain [Unknown]
  - Peripheral swelling [Recovered/Resolved]
  - Infusion site swelling [Not Recovered/Not Resolved]

NARRATIVE: CASE EVENT DATE: 20180706
